FAERS Safety Report 5918002-2 (Version None)
Quarter: 2008Q4

REPORT INFORMATION
  Report Type: 
  Country: None (occurrence: None)
  Receive Date: 20081014
  Receipt Date: 20081002
  Transmission Date: 20090506
  Serious: Yes (Hospitalization)
  Sender: FDA-Public Use
  Company Number: US-PFIZER INC-2008058959

PATIENT
  Sex: Male
  Weight: 111.6 kg

DRUGS (9)
  1. CHANTIX [Suspect]
     Indication: SMOKING CESSATION THERAPY
     Route: 048
     Dates: start: 20080714, end: 20080919
  2. BENICAR [Concomitant]
     Indication: HYPERTENSION
  3. OXYCODONE HCL [Concomitant]
     Indication: BACK PAIN
  4. NEURONTIN [Concomitant]
  5. CARISOPRODOL [Concomitant]
  6. CYMBALTA [Concomitant]
  7. ZOLPIDEM [Concomitant]
  8. FLUTICASONE PROPIONATE [Concomitant]
  9. CLONAZEPAM [Concomitant]

REACTIONS (3)
  - INCORRECT DOSE ADMINISTERED [None]
  - MEDICATION ERROR [None]
  - MENTAL DISORDER [None]
